FAERS Safety Report 24997256 (Version 2)
Quarter: 2025Q3

REPORT INFORMATION
  Report Type: Report from Study
  Country: US (occurrence: US)
  Receive Date: 20250221
  Receipt Date: 20250819
  Transmission Date: 20251020
  Serious: Yes (Other)
  Sender: ABBVIE
  Company Number: US-ABBVIE-5544630

PATIENT
  Age: 50 Year
  Sex: Male

DRUGS (4)
  1. RINVOQ [Suspect]
     Active Substance: UPADACITINIB
     Indication: Eczema
     Dosage: STRENGTH:15MG?DRUG END DATE-2023
     Route: 048
     Dates: start: 20230320
  2. RINVOQ [Suspect]
     Active Substance: UPADACITINIB
     Indication: Eczema
     Dosage: STRENGTH:15MG
     Route: 048
     Dates: start: 20231127, end: 202312
  3. RINVOQ [Suspect]
     Active Substance: UPADACITINIB
     Indication: Eczema
     Dosage: STRENGTH:15MG, LAST ADMIN DATE: 2025
     Route: 048
  4. RINVOQ [Suspect]
     Active Substance: UPADACITINIB
     Indication: Eczema
     Dosage: STRENGTH:15MG
     Route: 048

REACTIONS (12)
  - Radius fracture [Unknown]
  - Eczema [Recovered/Resolved]
  - Sinusitis bacterial [Unknown]
  - Rash [Not Recovered/Not Resolved]
  - Influenza [Unknown]
  - Pain of skin [Not Recovered/Not Resolved]
  - Sleep disorder [Not Recovered/Not Resolved]
  - Skin laceration [Not Recovered/Not Resolved]
  - Sensory disturbance [Unknown]
  - Nail cuticle fissure [Unknown]
  - Skin exfoliation [Unknown]
  - Pruritus [Unknown]

NARRATIVE: CASE EVENT DATE: 20230101
